FAERS Safety Report 4383889-4 (Version None)
Quarter: 2004Q2

REPORT INFORMATION
  Report Type: 
  Country: None (occurrence: None)
  Receive Date: 20040617
  Receipt Date: 20040603
  Transmission Date: 20050107
  Serious: Yes (Life-Threatening, Hospitalization)
  Sender: FDA-Public Use
  Company Number: 2004217084FI

PATIENT
  Age: 90 Year
  Sex: Female

DRUGS (11)
  1. BEXTRA [Suspect]
     Indication: PAIN
     Dosage: 40 MG, QD, ORAL
     Route: 048
     Dates: start: 20040428, end: 20040504
  2. WARFARIN SODIUM [Concomitant]
  3. DIGOXIN [Concomitant]
  4. OBSIDER [Concomitant]
  5. D-CALSOR (CALCIUM PHOSPHATE DIBASIC) [Concomitant]
  6. ATACAND [Concomitant]
  7. FUROMIN [Concomitant]
  8. ACETAMINOPHEN [Concomitant]
  9. TENOX [Concomitant]
  10. LACTITOL (LACTITOL) [Concomitant]
  11. FOSAMAX [Concomitant]

REACTIONS (3)
  - DRUG INTERACTION [None]
  - INTERNATIONAL NORMALISED RATIO INCREASED [None]
  - SUBCUTANEOUS HAEMATOMA [None]
